FAERS Safety Report 8315793 (Version 2)
Quarter: 2012Q4

REPORT INFORMATION
  Report Type: 
  Country: US (occurrence: US)
  Receive Date: 20111229
  Receipt Date: 20120918
  Transmission Date: 20130627
  Serious: Yes (Hospitalization)
  Sender: FDA-Public Use
  Company Number: US-GLAXOSMITHKLINE-A0829275A

PATIENT
  Age: 50 Year
  Sex: Female
  Weight: 127.3 kg

DRUGS (1)
  1. AVANDIA [Suspect]
     Indication: DIABETES MELLITUS
     Dosage: 8MG per day
     Route: 048
     Dates: start: 2008

REACTIONS (11)
  - Rheumatoid arthritis [Not Recovered/Not Resolved]
  - Visual impairment [Unknown]
  - Weight increased [Unknown]
  - Cardiomegaly [Unknown]
  - Lung disorder [Unknown]
  - Visual impairment [Unknown]
  - Dyspnoea [Unknown]
  - Fatigue [Unknown]
  - Stress [Unknown]
  - Fibromyalgia [Unknown]
  - Cardiac disorder [Unknown]
